FAERS Safety Report 15894016 (Version 1)
Quarter: 2019Q1

REPORT INFORMATION
  Report Type: Spontaneous
  Country: US (occurrence: US)
  Receive Date: 20190130
  Receipt Date: 20190130
  Transmission Date: 20190417
  Serious: No
  Sender: FDA-Public Use
  Company Number: None

PATIENT
  Age: 60 Year
  Sex: Female

DRUGS (1)
  1. CLONAZEPAM TABLETS [Suspect]
     Active Substance: CLONAZEPAM
     Indication: ANXIETY
     Route: 048
     Dates: start: 20190130, end: 20190130

REACTIONS (4)
  - Product quality issue [None]
  - Agitation [None]
  - Formication [None]
  - Drug ineffective [None]

NARRATIVE: CASE EVENT DATE: 20190130
